FAERS Safety Report 5036656-2 (Version None)
Quarter: 2006Q2

REPORT INFORMATION
  Report Type: 
  Country: None (occurrence: None)
  Receive Date: 20060616
  Receipt Date: 20060417
  Transmission Date: 20061013
  Serious: No
  Sender: FDA-Public Use
  Company Number: 2006RL000152

PATIENT
  Age: 49 Year
  Sex: Female
  Weight: 72.1219 kg

DRUGS (4)
  1. OMACOR [Suspect]
     Indication: BLOOD CHOLESTEROL INCREASED
     Dosage: 2 GM;QD;PO
     Route: 048
     Dates: start: 20060313, end: 20060417
  2. OMACOR [Suspect]
     Indication: BLOOD TRIGLYCERIDES INCREASED
     Dosage: 2 GM;QD;PO
     Route: 048
     Dates: start: 20060313, end: 20060417
  3. VITAMINS, OTHER COMBINATIONS (VITAMINS, OTHER COMBINATIONS) [Suspect]
     Indication: VITAMIN SUPPLEMENTATION
     Dosage: QD;PO
     Route: 048
     Dates: end: 20060417
  4. VITAMINS, OTHER COMBINATIONS (VITAMINS, OTHER COMBINATIONS) [Suspect]
     Indication: VITAMIN SUPPLEMENTATION
     Dosage: QD;PO
     Route: 048
     Dates: start: 20060426

REACTIONS (4)
  - DRUG INTERACTION [None]
  - PRURITUS [None]
  - RASH [None]
  - URTICARIA [None]
